FAERS Safety Report 6926491-X (Version None)
Quarter: 2010Q3

REPORT INFORMATION
  Report Type: 
  Country: None (occurrence: None)
  Receive Date: 20100816
  Receipt Date: 20100813
  Transmission Date: 20110219
  Serious: Yes (Hospitalization)
  Sender: FDA-Public Use
  Company Number: IT-MERCK-1007ITA00019

PATIENT
  Age: 61 Year
  Sex: Male

DRUGS (7)
  1. JANUMET [Suspect]
     Indication: TYPE 2 DIABETES MELLITUS
     Route: 048
     Dates: start: 20090421, end: 20100707
  2. OLMESARTAN MEDOXOMIL [Concomitant]
     Route: 065
  3. ATORVASTATIN [Concomitant]
     Route: 065
  4. TIMOLOL [Concomitant]
     Route: 065
  5. BRINZOLAMIDE [Concomitant]
     Route: 065
  6. METFORMIN [Concomitant]
     Route: 065
  7. GLIMEPIRIDE [Concomitant]
     Route: 065

REACTIONS (1)
  - PERICARDIAL EFFUSION [None]
